FAERS Safety Report 9525708 (Version 2)
Quarter: 2013Q4

REPORT INFORMATION
  Report Type: Spontaneous
  Country: RU (occurrence: RU)
  Receive Date: 20130916
  Receipt Date: 20131104
  Transmission Date: 20140711
  Serious: Yes (Life-Threatening, Other)
  Sender: FDA-Public Use
  Company Number: RU-ROCHE-1275728

PATIENT
  Age: 11 Year
  Sex: Male

DRUGS (6)
  1. ACTEMRA [Suspect]
     Indication: JUVENILE IDIOPATHIC ARTHRITIS
     Route: 042
     Dates: start: 20130716, end: 20130816
  2. METHOTREXATE [Concomitant]
     Indication: JUVENILE IDIOPATHIC ARTHRITIS
     Route: 030
     Dates: start: 2004
  3. ASPARKAM [Concomitant]
  4. FOLIC ACID [Concomitant]
  5. CAPTOPRIL [Concomitant]
  6. SOLU-MEDROL [Concomitant]

REACTIONS (3)
  - Bronchospasm [Recovered/Resolved]
  - Dermatitis allergic [Recovered/Resolved]
  - Cushingoid [Not Recovered/Not Resolved]
